FAERS Safety Report 6048364-X (Version None)
Quarter: 2009Q1

REPORT INFORMATION
  Report Type: 
  Country: None (occurrence: None)
  Receive Date: 20090121
  Receipt Date: 20090121
  Transmission Date: 20090719
  Serious: Yes (Hospitalization)
  Sender: FDA-Public Use
  Company Number: None

PATIENT
  Age: 70 Year
  Sex: Female
  Weight: 115.3 kg

DRUGS (1)
  1. REMICADE [Suspect]
     Indication: RHEUMATOID ARTHRITIS
     Dosage: 6 MG/DK ROUND UP TO COMPLETE EVERY 7 WEEKS IV
     Route: 042
     Dates: start: 20031117, end: 20081202

REACTIONS (5)
  - ANOREXIA [None]
  - CARDIAC FAILURE CONGESTIVE [None]
  - DRUG EFFECT DECREASED [None]
  - LUNG DISORDER [None]
  - TREATMENT FAILURE [None]
